FAERS Safety Report 16276837 (Version 2)
Quarter: 2019Q4

REPORT INFORMATION
  Report Type: Spontaneous
  Country: US (occurrence: US)
  Receive Date: 20190506
  Receipt Date: 20191025
  Transmission Date: 20200122
  Serious: Yes (Hospitalization, Other)
  Sender: FDA-Public Use
  Company Number: US-ASTRAZENECA-2018SF65367

PATIENT
  Age: 18581 Day
  Sex: Female
  Weight: 73 kg

DRUGS (23)
  1. CEPHALEXIN. [Concomitant]
     Active Substance: CEPHALEXIN
  2. GEODON [Concomitant]
     Active Substance: ZIPRASIDONE HYDROCHLORIDE\ZIPRASIDONE MESYLATE
  3. PROTONIX [Suspect]
     Active Substance: PANTOPRAZOLE SODIUM
     Dosage: GENERIC20.0MG UNKNOWN
     Route: 065
     Dates: start: 20190413
  4. PREDNISONE. [Concomitant]
     Active Substance: PREDNISONE
  5. PROTONIX [Suspect]
     Active Substance: PANTOPRAZOLE SODIUM
     Route: 065
  6. FLUCONAZOLE. [Concomitant]
     Active Substance: FLUCONAZOLE
  7. ZOLOFT [Concomitant]
     Active Substance: SERTRALINE HYDROCHLORIDE
  8. ASPIRIN. [Concomitant]
     Active Substance: ASPIRIN
  9. IBUPROFEN. [Concomitant]
     Active Substance: IBUPROFEN
  10. OXYCODONE [Concomitant]
     Active Substance: OXYCODONE
  11. NEXIUM [Suspect]
     Active Substance: ESOMEPRAZOLE MAGNESIUM
     Route: 048
  12. NEXIUM [Suspect]
     Active Substance: ESOMEPRAZOLE MAGNESIUM
     Dosage: 40.0MG UNKNOWN
     Route: 048
     Dates: start: 20110707
  13. ALBUTEROL. [Concomitant]
     Active Substance: ALBUTEROL
  14. METOPROLOL. [Concomitant]
     Active Substance: METOPROLOL
  15. LOSARTAN. [Concomitant]
     Active Substance: LOSARTAN
  16. NEXIUM [Suspect]
     Active Substance: ESOMEPRAZOLE MAGNESIUM
     Dosage: 40.0MG UNKNOWN
     Route: 048
     Dates: start: 20080814
  17. CLONAZEPAM. [Concomitant]
     Active Substance: CLONAZEPAM
  18. VITAMIN C [Concomitant]
     Active Substance: ASCORBIC ACID
  19. MONTELUKAST [Concomitant]
     Active Substance: MONTELUKAST SODIUM
  20. LOPRESSOR [Concomitant]
     Active Substance: METOPROLOL TARTRATE
  21. PROTONIX [Suspect]
     Active Substance: PANTOPRAZOLE SODIUM
     Dosage: GENERIC20.0MG UNKNOWN
     Route: 065
     Dates: start: 20130104
  22. COLACE [Concomitant]
     Active Substance: DOCUSATE SODIUM
  23. SPIRIVA [Concomitant]
     Active Substance: TIOTROPIUM BROMIDE MONOHYDRATE

REACTIONS (7)
  - Rebound acid hypersecretion [Unknown]
  - Metabolic acidosis [Unknown]
  - Chronic kidney disease [Unknown]
  - Tubulointerstitial nephritis [Unknown]
  - Renal injury [Unknown]
  - Renal failure [Unknown]
  - Acute kidney injury [Unknown]

NARRATIVE: CASE EVENT DATE: 20130701
